FAERS Safety Report 7326690-1 (Version None)
Quarter: 2011Q1

REPORT INFORMATION
  Report Type: 
  Country: None (occurrence: None)
  Receive Date: 20110302
  Receipt Date: 20110228
  Transmission Date: 20110831
  Serious: Yes (Hospitalization)
  Sender: FDA-Public Use
  Company Number: ES-PFIZER INC-2011043807

PATIENT
  Age: 76 Year
  Sex: Female

DRUGS (4)
  1. IBUPROFEN [Interacting]
     Indication: HUMERUS FRACTURE
     Dosage: 1200 MG, 1X/DAY
     Route: 048
     Dates: start: 20100505, end: 20100517
  2. ALDACTONE [Suspect]
     Indication: HEPATIC CIRRHOSIS
     Dosage: 25 MG, 1X/DAY
     Route: 048
     Dates: start: 20090301
  3. COZAAR [Interacting]
     Indication: HYPERTENSION
     Dosage: 50 MG, 1X/DAY
     Route: 048
  4. SEGURIL [Interacting]
     Indication: HEPATIC CIRRHOSIS
     Dosage: 20 MG, 1X/DAY
     Route: 048
     Dates: start: 20090301, end: 20100517

REACTIONS (3)
  - DRUG INTERACTION [None]
  - HEPATIC ENCEPHALOPATHY [None]
  - RENAL FAILURE ACUTE [None]
